FAERS Safety Report 7351487-6 (Version None)
Quarter: 2011Q1

REPORT INFORMATION
  Report Type: 
  Country: None (occurrence: None)
  Receive Date: 20110314
  Receipt Date: 20110303
  Transmission Date: 20110831
  Serious: Yes (Hospitalization)
  Sender: FDA-Public Use
  Company Number: JP-MERCK-1103USA01132

PATIENT
  Age: 91 Year
  Sex: Male

DRUGS (3)
  1. DONEPEZIL HCL [Suspect]
     Route: 048
  2. CHLORPROMAZINE [Concomitant]
     Route: 048
  3. PEPCID [Suspect]
     Route: 048

REACTIONS (1)
  - LIVER DISORDER [None]
